FAERS Safety Report 7556888 (Version 7)
Quarter: 2012Q4

REPORT INFORMATION
  Report Type: 
  Country: US (occurrence: US)
  Receive Date: 20100827
  Receipt Date: 20120829
  Transmission Date: 20130627
  Serious: Yes (Death, Life-Threatening, Hospitalization, Disabling, Other)
  Sender: FDA-Public Use
  Company Number: US-BAYER-201011109NA

PATIENT
  Age: 71 Year
  Sex: Male

DRUGS (16)
  1. NEXAVAR [Suspect]
     Indication: HEPATIC NEOPLASM MALIGNANT
     Route: 048
     Dates: start: 20091102, end: 20091108
  2. NEXAVAR [Suspect]
     Indication: HEPATIC NEOPLASM MALIGNANT
     Route: 048
     Dates: start: 20091109, end: 20100115
  3. PROCRIT [Concomitant]
     Indication: ANAEMIA
     Dosage: 40,000 WEEKLY
     Route: 058
     Dates: start: 20080123
  4. RIFAXIMIN [Concomitant]
     Indication: HEPATIC ENCEPHALOPATHY
     Dosage: 1200 mg (Daily Dose), , oral
     Route: 048
     Dates: start: 20090922
  5. LACTULOSE [Concomitant]
     Indication: HEPATIC ENCEPHALOPATHY
     Route: 048
     Dates: start: 20070606
  6. LACTULOSE [Concomitant]
     Indication: HEPATIC ENCEPHALOPATHY
     Dosage: DOSE INCREASED
     Dates: start: 201001
  7. PREVACID [Concomitant]
     Indication: GASTRIC ULCER
     Route: 048
     Dates: start: 20070606
  8. INDERAL LA [Concomitant]
     Indication: HYPERTENSION
     Route: 048
     Dates: start: 20070227
  9. TORSEMIDE [Concomitant]
     Indication: OEDEMA
     Route: 048
     Dates: start: 20080123, end: 20100115
  10. SPIRONOLACTONE [Concomitant]
     Indication: OEDEMA
     Route: 048
     Dates: start: 20080123, end: 20100115
  11. ALLOPURINOL [Concomitant]
     Dosage: 100 mg, QD
     Route: 048
     Dates: start: 20070201, end: 20100115
  12. ALLOPURINOL [Concomitant]
     Dosage: 100 mg, QD
     Route: 048
     Dates: start: 20091208
  13. FOLIC ACID [Concomitant]
     Indication: ANAEMIA
     Route: 048
     Dates: start: 20070129
  14. MULTIVITAMIN [Concomitant]
     Indication: ANAEMIA
     Dosage: 1 CAPSULE
     Route: 048
     Dates: start: 20070102
  15. IMODIUM [Concomitant]
     Indication: DIARRHOEA
     Dosage: 2-4 MG
     Route: 048
  16. ZOFRAN [Suspect]
     Dosage: 4-8 mg, PRN
     Route: 042
     Dates: start: 20100106, end: 20100129

REACTIONS (8)
  - Deep vein thrombosis [Not Recovered/Not Resolved]
  - Renal failure acute [Not Recovered/Not Resolved]
  - Somnolence [Recovered/Resolved]
  - Hyperkalaemia [Recovering/Resolving]
  - Pulmonary oedema [Fatal]
  - Dyspnoea [Not Recovered/Not Resolved]
  - Encephalopathy [Fatal]
  - Atrial fibrillation [Unknown]
